FAERS Safety Report 9924449 (Version 1)
Quarter: 2014Q1

REPORT INFORMATION
  Report Type: Spontaneous
  Country: US (occurrence: None)
  Receive Date: 20140224
  Receipt Date: 20140224
  Transmission Date: 20141002
  Serious: Yes (Other)
  Sender: FDA-Public Use
  Company Number: None

PATIENT
  Age: 67 Year
  Sex: Male
  Weight: 70.76 kg

DRUGS (1)
  1. FINASTERIDE 5 MG AUROBINDO [Suspect]
     Indication: PROSTATOMEGALY
     Dosage: 1 PILL ONCE DAILY?? YEAR AND A HALF
     Route: 048

REACTIONS (1)
  - Peyronie^s disease [None]
